FAERS Safety Report 11990906 (Version 1)
Quarter: 2016Q1

REPORT INFORMATION
  Report Type: Spontaneous
  Country: US (occurrence: US)
  Receive Date: 20160202
  Receipt Date: 20160202
  Transmission Date: 20160526
  Serious: No
  Sender: FDA-Public Use
  Company Number: PHHY2010US099210

PATIENT
  Age: 34 Year
  Sex: Female
  Weight: 70.5 kg

DRUGS (2)
  1. PRENATAL VITAMINS [Concomitant]
     Active Substance: VITAMINS
     Indication: PRODUCT USED FOR UNKNOWN INDICATION
     Dosage: ?????
     Route: 065
  2. ZOFRAN [Suspect]
     Active Substance: ONDANSETRON HYDROCHLORIDE
     Indication: HYPEREMESIS GRAVIDARUM
     Dosage: 4 MG, BID
     Route: 048
     Dates: start: 201007, end: 20100819

REACTIONS (3)
  - Exposure during pregnancy [Recovering/Resolving]
  - Asthenia [None]
  - Chills [None]

NARRATIVE: CASE EVENT DATE: 20100710
